FAERS Safety Report 6962107-4 (Version None)
Quarter: 2010Q3

REPORT INFORMATION
  Report Type: 
  Country: None (occurrence: None)
  Receive Date: 20100823
  Receipt Date: 20100706
  Transmission Date: 20110219
  Serious: No
  Sender: FDA-Public Use
  Company Number: 003753

PATIENT
  Sex: Male

DRUGS (1)
  1. CIMZIA [Suspect]
     Dosage: (400 MG 1X/MONTH SUBCUTANEOUS)
     Route: 058
     Dates: start: 20090408

REACTIONS (3)
  - INJECTION SITE ERYTHEMA [None]
  - INJECTION SITE HAEMORRHAGE [None]
  - PRURITUS [None]
